FAERS Safety Report 24997742 (Version 3)
Quarter: 2025Q3

REPORT INFORMATION
  Report Type: Report from Study
  Country: US (occurrence: US)
  Receive Date: 20250222
  Receipt Date: 20250811
  Transmission Date: 20251021
  Serious: Yes (Death)
  Sender: ABBVIE
  Company Number: US-ABBVIE-6145636

PATIENT
  Age: 81 Year
  Sex: Male

DRUGS (26)
  1. VENCLEXTA [Suspect]
     Active Substance: VENETOCLAX
     Indication: Acute myeloid leukaemia
     Dosage: STRENGTH: 100 MG, ?STOP DATE: 2023
     Route: 048
     Dates: start: 20230401
  2. VENCLEXTA [Suspect]
     Active Substance: VENETOCLAX
     Indication: Acute myeloid leukaemia
     Dosage: STRENGTH: 100 MG,
     Route: 048
     Dates: end: 20240627
  3. VENCLEXTA [Suspect]
     Active Substance: VENETOCLAX
     Indication: Acute myeloid leukaemia
     Dosage: STRENGTH: 100 MG,
     Route: 048
     Dates: start: 20230610, end: 20230704
  4. TRIXAICIN [Concomitant]
     Active Substance: CAPSICUM OLEORESIN
     Indication: Back pain
     Route: 061
     Dates: start: 20230616
  5. ZOVIRAX [Concomitant]
     Active Substance: ACYCLOVIR
     Indication: Prophylaxis
     Dosage: STRENGTH: 400 MG, INFECTION SOURCE: FEBRILE NEUTROPENIA
     Route: 048
     Dates: start: 20230522
  6. LIDOCAINE [Concomitant]
     Active Substance: LIDOCAINE
     Indication: Product used for unknown indication
     Dosage: STRENGTH: 5 PERCENT
     Route: 062
     Dates: start: 20230618
  7. LOPRESSOR [Concomitant]
     Active Substance: METOPROLOL TARTRATE
     Indication: Product used for unknown indication
     Dosage: STRENGTH: 25 MG
     Route: 048
     Dates: start: 20230601
  8. TRAZODONE [Concomitant]
     Active Substance: TRAZODONE HYDROCHLORIDE
     Indication: Product used for unknown indication
     Dosage: STRENGTH: 50 MG, EVERY BEDTIME
     Route: 048
     Dates: start: 20230618
  9. VANCOMYCIN [Concomitant]
     Active Substance: VANCOMYCIN
     Indication: Product used for unknown indication
     Dosage: STRENGTH: 1.25 G/250 ML STERILE WATER IVBP PREMIX, INFECTION SOURCE: BLOODSTREAM
     Route: 042
     Dates: start: 20230617, end: 20230620
  10. TYLENOL [Concomitant]
     Active Substance: ACETAMINOPHEN
     Indication: Product used for unknown indication
     Dosage: STRENGTH: 1000 MG
     Route: 048
     Dates: start: 20230521
  11. DEXTROSE [Concomitant]
     Active Substance: DEXTROSE MONOHYDRATE
     Indication: Blood glucose decreased
     Route: 042
     Dates: start: 20230521
  12. DIPHENHYDRAMINE [Concomitant]
     Active Substance: DIPHENHYDRAMINE
     Indication: Pruritus
     Dosage: STRENGTH: 25 MG, PRN
     Route: 048
     Dates: start: 20230616
  13. IPRATROPIUM [Concomitant]
     Active Substance: IPRATROPIUM
     Indication: Bronchospasm
     Dosage: STRENGTH: 0.02 PERCENT
     Route: 055
     Dates: start: 20230602
  14. IMODIUM [Concomitant]
     Active Substance: LOPERAMIDE HYDROCHLORIDE
     Indication: Diarrhoea
     Dosage: STRENGTH: 2 MG, PRN?DO NOT EXCEED 16 MG/DAY.
     Route: 048
     Dates: start: 20230618
  15. SOLU-MEDROL [Concomitant]
     Active Substance: METHYLPREDNISOLONE SODIUM SUCCINATE
     Indication: Hypersensitivity
     Route: 042
     Dates: start: 20230601
  16. ONDANSETRON [Concomitant]
     Active Substance: ONDANSETRON
     Indication: Product used for unknown indication
     Dosage: STRENGTH: 8 MG, PRN?DO NOT ADMINISTER WITHIN 72 HOURS OF PALONISTERON. CHECK ROUTE BEFORE ADMINIS...
     Route: 042
     Dates: start: 20230601
  17. ONDANSETRON [Concomitant]
     Active Substance: ONDANSETRON
     Indication: Nausea
     Dosage: STRENGTH: 8 MG, PRN?DO NOT ADMINISTER WITHIN 72 HOURS OF PALONISTERON.
     Route: 048
     Dates: start: 20230601
  18. MIRALAX [Concomitant]
     Active Substance: POLYETHYLENE GLYCOL 3350
     Indication: Constipation
     Dosage: STRENGTH: 17 G, PRN,?STIR POWDER IN 4 TO 8 OUNCES OF WATER, JUICE, SODA, COFFEE, OR DRINK UNTIL D...
     Route: 048
     Dates: start: 20230521
  19. SENOKOT [Concomitant]
     Active Substance: SENNOSIDES
     Indication: Constipation
     Dosage: PRN
     Route: 048
     Dates: start: 20230521
  20. AMLODIPINE [Concomitant]
     Active Substance: AMLODIPINE BESYLATE
     Indication: Product used for unknown indication
     Dosage: STRENGTH: 10 MG
     Route: 048
     Dates: start: 20230608
  21. CANCIDAS [Concomitant]
     Active Substance: CASPOFUNGIN ACETATE
     Indication: Evidence based treatment
     Dosage: STRENGTH: 50 MG IN NS 100 ML IVPB MINI BAG PLUS
     Route: 042
     Dates: start: 20230610, end: 20230619
  22. HYDRODIURIL [Concomitant]
     Active Substance: HYDROCHLOROTHIAZIDE
     Indication: Product used for unknown indication
     Dosage: STRENGTH: 12.5 MG, EVERY MORNING
     Route: 048
     Dates: start: 20230620
  23. HUMALOG [Concomitant]
     Active Substance: INSULIN LISPRO
     Indication: Blood insulin decreased
     Route: 058
     Dates: start: 20230521
  24. HUMALOG [Concomitant]
     Active Substance: INSULIN LISPRO
     Indication: Blood insulin decreased
     Dosage: 0-3 UNITS, LOW INSULIN REQUIREMENT CORRECTIVE SCALE (MEALS), AT BEDTIME
     Route: 058
     Dates: start: 20230521
  25. NPH INSULIN [Concomitant]
     Active Substance: INSULIN BEEF
     Indication: Product used for unknown indication
     Dosage: STRENGTH: 2 UNITS
     Route: 058
     Dates: start: 20230601
  26. VANCOMYCIN [Concomitant]
     Active Substance: VANCOMYCIN
     Indication: Product used for unknown indication
     Dates: start: 20230617

REACTIONS (1)
  - Death [Fatal]

NARRATIVE: CASE EVENT DATE: 20241215
